FAERS Safety Report 9165118 (Version 1)
Quarter: 2013Q1

REPORT INFORMATION
  Report Type: Spontaneous
  Country: US (occurrence: US)
  Receive Date: 20130315
  Receipt Date: 20130315
  Transmission Date: 20140127
  Serious: No
  Sender: FDA-Public Use
  Company Number: US-TEVA-391365USA

PATIENT
  Age: 87 Year
  Sex: Male

DRUGS (8)
  1. PROAIR HFA [Suspect]
     Indication: ASTHMA
     Dosage: 720 MICROGRAM DAILY;
     Dates: start: 20130308
  2. TOPROL [Concomitant]
     Indication: HYPERTENSION
     Dosage: DAILY
  3. DILANTIN [Concomitant]
     Indication: CONVULSION
     Dosage: 200 MILLIGRAM DAILY;
  4. FLOMAX [Concomitant]
     Dosage: DAILY
  5. PRAVASTATIN [Concomitant]
     Indication: HYPERLIPIDAEMIA
     Dosage: DAILY
  6. FUROSEMIDE [Concomitant]
     Dosage: DAILY
  7. FINASTERIDE [Concomitant]
     Indication: PROSTATOMEGALY
     Dosage: DAILY
  8. ISOSORBIDE DINITRATE [Concomitant]
     Dosage: 120 MILLIGRAM DAILY;

REACTIONS (1)
  - Vomiting [Not Recovered/Not Resolved]
